FAERS Safety Report 7426431-3 (Version None)
Quarter: 2011Q2

REPORT INFORMATION
  Report Type: 
  Country: None (occurrence: None)
  Receive Date: 20110420
  Receipt Date: 20110414
  Transmission Date: 20111010
  Serious: Yes (Other)
  Sender: FDA-Public Use
  Company Number: US-SANOFI-AVENTIS-2011SA023160

PATIENT
  Age: 41 Year
  Sex: Female
  Weight: 117 kg

DRUGS (3)
  1. INSULIN DETEMIR [Concomitant]
     Dates: start: 20110101, end: 20110101
  2. APIDRA [Suspect]
     Indication: DIABETES MELLITUS
     Dosage: 5 UNITS AT BREAKFAST, 10 UNITS AT LUNCH AND 10 UNITS AT DINNER
     Route: 058
     Dates: start: 20110216, end: 20110317
  3. LABETALOL [Concomitant]
     Route: 065

REACTIONS (4)
  - INTRA-UTERINE DEATH [None]
  - DRUG EXPOSURE DURING PREGNANCY [None]
  - SWELLING [None]
  - HEADACHE [None]
